FAERS Safety Report 8862823 (Version 1)
Quarter: 2012Q4

REPORT INFORMATION
  Report Type: 
  Country: US (occurrence: US)
  Receive Date: 20121026
  Receipt Date: 20121026
  Transmission Date: 20130627
  Serious: Yes (Hospitalization)
  Sender: FDA-Public Use
  Company Number: US-GLAXOSMITHKLINE-A0814947A

PATIENT
  Age: 45 Year
  Sex: Male
  Weight: 96.4 kg

DRUGS (2)
  1. AVANDIA [Suspect]
     Indication: DIABETES MELLITUS
     Dosage: 8MG Per day
     Route: 048
     Dates: start: 20030409, end: 20071025
  2. AVANDAMET [Suspect]
     Indication: DIABETES MELLITUS
     Dosage: 1TAB Twice per day
     Route: 048
     Dates: start: 20070719, end: 20090822

REACTIONS (1)
  - Myocardial infarction [Unknown]
